FAERS Safety Report 9170655 (Version 1)
Quarter: 2013Q1

REPORT INFORMATION
  Report Type: Spontaneous
  Country: US (occurrence: None)
  Receive Date: 20130312
  Receipt Date: 20130312
  Transmission Date: 20140127
  Serious: No
  Sender: FDA-Public Use
  Company Number: CLOZ20130007

PATIENT
  Age: 48 Year
  Sex: Male

DRUGS (3)
  1. CLONAZEPAM [Suspect]
     Indication: POLYDIPSIA PSYCHOGENIC
     Dates: start: 2007, end: 200908
  2. ZIPRASIDONE [Suspect]
     Indication: POLYDIPSIA PSYCHOGENIC
  3. BUPROPION [Suspect]
     Indication: POLYDIPSIA PSYCHOGENIC
     Dosage: 300MG, 1 IN 1 D
     Dates: start: 2007

REACTIONS (3)
  - No therapeutic response [None]
  - Somnolence [None]
  - Inhibitory drug interaction [None]
